FAERS Safety Report 4480546-0 (Version None)
Quarter: 2004Q4

REPORT INFORMATION
  Report Type: 
  Country: None (occurrence: None)
  Receive Date: 20041019
  Receipt Date: 20041019
  Transmission Date: 20050328
  Serious: Yes (Hospitalization, Disabling)
  Sender: FDA-Public Use
  Company Number: 2004AP01943

PATIENT
  Age: 62 Year
  Sex: Female
  Weight: 62 kg

DRUGS (13)
  1. IRESSA [Suspect]
     Dosage: 250MG DAILY PO
     Route: 048
     Dates: start: 20021025, end: 20020220
  2. IRESSA [Suspect]
     Dosage: 250MG DAILY PO
     Route: 048
     Dates: start: 20020611, end: 20021017
  3. IRESSA [Suspect]
     Dosage: 250MG DAILY PO
     Route: 048
     Dates: start: 20040207, end: 20040416
  4. IRESSA [Suspect]
     Dosage: 250MG DAILY PO
     Route: 048
     Dates: start: 20040420, end: 20040601
  5. IRESSA [Suspect]
     Dosage: 250MG DAILY PO
     Route: 048
     Dates: start: 20040723
  6. MGO [Concomitant]
  7. CELEBREX [Concomitant]
  8. GEMCITABINE [Concomitant]
  9. CISPLATIN [Concomitant]
  10. PACLITAXEL [Concomitant]
  11. RADIOTHERAPY [Concomitant]
  12. PRIMPERAN INJ [Concomitant]
  13. STILNOX [Concomitant]

REACTIONS (19)
  - ADENOCARCINOMA [None]
  - ARACHNOID CYST [None]
  - ASTHENIA [None]
  - BONE MARROW DISORDER [None]
  - CEREBROSPINAL FLUID LEAKAGE [None]
  - CSF TEST ABNORMAL [None]
  - DEPRESSED LEVEL OF CONSCIOUSNESS [None]
  - HAEMATOMA [None]
  - HEADACHE [None]
  - IMPAIRED HEALING [None]
  - METASTASES TO CENTRAL NERVOUS SYSTEM [None]
  - METASTASES TO MENINGES [None]
  - MUSCULAR WEAKNESS [None]
  - MYELITIS TRANSVERSE [None]
  - PHLEBOTHROMBOSIS [None]
  - PUNCTURE SITE HAEMORRHAGE [None]
  - PYREXIA [None]
  - URINARY INCONTINENCE [None]
  - URINARY TRACT INFECTION [None]
